FAERS Safety Report 4609024-2 (Version None)
Quarter: 2005Q1

REPORT INFORMATION
  Report Type: 
  Country: None (occurrence: None)
  Receive Date: 20050311
  Receipt Date: 20050226
  Transmission Date: 20050727
  Serious: Yes (Other)
  Sender: FDA-Public Use
  Company Number: 2005030434

PATIENT
  Sex: Male
  Weight: 127.0072 kg

DRUGS (1)
  1. CELEBREX [Suspect]
     Indication: ARTHRITIS
     Dosage: 200 MG (100 MG, 2 IN 1 D)
     Dates: start: 20030101, end: 20050101

REACTIONS (4)
  - CARDIAC VALVE DISEASE [None]
  - CHEST PAIN [None]
  - EPISTAXIS [None]
  - THROMBOSIS [None]
